FAERS Safety Report 15150297 (Version 1)
Quarter: 2018Q3

REPORT INFORMATION
  Report Type: Spontaneous
  Country: DE (occurrence: DE)
  Receive Date: 20180716
  Receipt Date: 20180716
  Transmission Date: 20181010
  Serious: Yes (Other)
  Sender: FDA-Public Use
  Company Number: DE-US WORLDMEDS, LLC-STA_00017794

PATIENT
  Age: 50 Year
  Sex: Male
  Weight: 99 kg

DRUGS (4)
  1. MADOPAR DEPOT 100/25 [Concomitant]
     Active Substance: BENSERAZIDE HYDROCHLORIDE\LEVODOPA
     Indication: PARKINSON^S DISEASE
     Route: 048
  2. APOMORPHINE HYDROCHLORIDE [Suspect]
     Active Substance: APOMORPHINE HYDROCHLORIDE
     Indication: PARKINSON^S DISEASE
     Dosage: FROM 6 AM TO 10 PM
     Route: 058
     Dates: start: 201105
  3. CIPRALEX 20MG [Concomitant]
     Indication: PARKINSON^S DISEASE
     Route: 048
  4. MADOPAR 125T [Concomitant]
     Indication: PARKINSON^S DISEASE
     Route: 048

REACTIONS (2)
  - Injection site nodule [Not Recovered/Not Resolved]
  - Injection site necrosis [Not Recovered/Not Resolved]

NARRATIVE: CASE EVENT DATE: 201201
